FAERS Safety Report 8394867-2 (Version None)
Quarter: 2012Q2

REPORT INFORMATION
  Report Type: 
  Country: None (occurrence: None)
  Receive Date: 20120530
  Receipt Date: 20120525
  Transmission Date: 20120825
  Serious: Yes (Other)
  Sender: FDA-Public Use
  Company Number: DE-ELI_LILLY_AND_COMPANY-DE201205008875

PATIENT
  Age: 75 Year
  Sex: Male

DRUGS (1)
  1. EFFIENT [Suspect]
     Indication: STENT PLACEMENT
     Dosage: UNK UNK, UNKNOWN
     Route: 065
     Dates: start: 20120302

REACTIONS (3)
  - CORONARY ARTERY ANEURYSM [None]
  - INGUINAL HERNIA [None]
  - HAEMATOMA [None]
